FAERS Safety Report 6300860-3 (Version None)
Quarter: 2009Q3

REPORT INFORMATION
  Report Type: 
  Country: None (occurrence: None)
  Receive Date: 20090807
  Receipt Date: 20090731
  Transmission Date: 20100115
  Serious: Yes (Death)
  Sender: FDA-Public Use
  Company Number: GB-BRISTOL-MYERS SQUIBB COMPANY-14730030

PATIENT
  Sex: Female

DRUGS (2)
  1. METFORMIN HCL [Suspect]
     Dosage: METFORMIN 500 MG
     Route: 048
  2. AMISULPRIDE [Suspect]
     Route: 048

REACTIONS (2)
  - DEATH [None]
  - DRUG LEVEL INCREASED [None]
